FAERS Safety Report 20316554 (Version 2)
Quarter: 2022Q3

REPORT INFORMATION
  Report Type: Report from Study
  Country: DE (occurrence: DE)
  Receive Date: 20220110
  Receipt Date: 20220707
  Transmission Date: 20221027
  Serious: Yes (Hospitalization, Other)
  Sender: FDA-Public Use
  Company Number: DE-ABBVIE-21K-062-4209051-00

PATIENT
  Age: 70 Year
  Sex: Female
  Weight: 105 kg

DRUGS (8)
  1. BISOPROLOL [Suspect]
     Active Substance: BISOPROLOL
     Indication: Product used for unknown indication
     Dosage: UNK UNK, QD
     Route: 065
  2. SKYRIZI [Suspect]
     Active Substance: RISANKIZUMAB-RZAA
     Indication: Psoriasis
     Dosage: 150 MILLIGRAM
     Route: 058
     Dates: start: 20210301
  3. INNOHEP [Concomitant]
     Active Substance: TINZAPARIN SODIUM
     Indication: Product used for unknown indication
     Dosage: ONCE DAILY IF NEEDED
     Route: 065
  4. NALOXONE HYDROCHLORIDE\TILIDINE HYDROCHLORIDE [Concomitant]
     Active Substance: NALOXONE HYDROCHLORIDE\TILIDINE HYDROCHLORIDE
     Indication: Product used for unknown indication
     Dosage: UNK, QD
     Route: 065
  5. IBUPROFEN [Concomitant]
     Active Substance: IBUPROFEN
     Indication: Product used for unknown indication
     Dosage: UNK, QD
     Route: 065
  6. TORSEMIDE [Concomitant]
     Active Substance: TORSEMIDE
     Indication: Product used for unknown indication
     Dosage: UNK, QD
     Route: 065
  7. LERKANIDIPIN ACTAVIS [Concomitant]
     Indication: Product used for unknown indication
     Dosage: UNK, QD
     Route: 065
  8. PANTOZOL [Concomitant]
     Active Substance: PANTOPRAZOLE SODIUM
     Indication: Product used for unknown indication
     Dosage: UNK, QD
     Route: 065

REACTIONS (32)
  - Alanine aminotransferase increased [Recovered/Resolved]
  - Blood creatinine increased [Unknown]
  - Low density lipoprotein increased [Unknown]
  - High density lipoprotein decreased [Unknown]
  - C-reactive protein increased [Recovered/Resolved]
  - Blood thyroid stimulating hormone decreased [Unknown]
  - Supraventricular tachycardia [Unknown]
  - Thyroxine increased [Recovered/Resolved]
  - Thrombosis prophylaxis [Unknown]
  - Haematocrit decreased [Unknown]
  - Sinus bradycardia [Recovered/Resolved]
  - Aspartate aminotransferase abnormal [Recovered/Resolved]
  - Arthralgia [Unknown]
  - Diastolic dysfunction [Recovered/Resolved]
  - Hyperuricaemia [Recovered/Resolved]
  - Blood uric acid increased [Unknown]
  - Hypotension [Unknown]
  - Ventricular extrasystoles [Unknown]
  - Blood glucose increased [Not Recovered/Not Resolved]
  - Red blood cell count decreased [Unknown]
  - Granulocyte count increased [Unknown]
  - White blood cell count decreased [Unknown]
  - Urinary tract infection [Recovered/Resolved]
  - Chest X-ray abnormal [Unknown]
  - Glomerular filtration rate decreased [Unknown]
  - Platelet count decreased [Recovered/Resolved]
  - Osteoarthritis [Recovered/Resolved]
  - Hyperthyroidism [Recovered/Resolved]
  - Gait disturbance [Unknown]
  - Prosthesis implantation [Recovered/Resolved]
  - Supraventricular extrasystoles [Recovered/Resolved]
  - Antibody test positive [Unknown]

NARRATIVE: CASE EVENT DATE: 20210101
